FAERS Safety Report 15813954 (Version 1)
Quarter: 2019Q1

REPORT INFORMATION
  Report Type: Spontaneous
  Country: US (occurrence: US)
  Receive Date: 20190111
  Receipt Date: 20190111
  Transmission Date: 20190417
  Serious: Yes (Death, Hospitalization, Other)
  Sender: FDA-Public Use
  Company Number: None

PATIENT
  Age: 66 Year
  Sex: Female

DRUGS (1)
  1. YESCARTA [Suspect]
     Active Substance: AXICABTAGENE CILOLEUCEL
     Indication: DIFFUSE LARGE B-CELL LYMPHOMA
     Dosage: ?          OTHER FREQUENCY:ONCE;?
     Route: 041
     Dates: start: 20181105, end: 20181105

REACTIONS (6)
  - Cytopenia [None]
  - Cardiorenal syndrome [None]
  - Haemophagocytic lymphohistiocytosis [None]
  - Cardiomyopathy [None]
  - Atrial fibrillation [None]
  - Enterococcal infection [None]

NARRATIVE: CASE EVENT DATE: 20181118
